FAERS Safety Report 22262717 (Version 3)
Quarter: 2023Q2

REPORT INFORMATION
  Report Type: Report from Study
  Country: NL (occurrence: NL)
  Receive Date: 20230428
  Receipt Date: 20230629
  Transmission Date: 20230722
  Serious: Yes (Hospitalization, Other)
  Sender: FDA-Public Use
  Company Number: NL-ABBVIE-4724806

PATIENT
  Age: 70 Year
  Sex: Female

DRUGS (10)
  1. CARBIDOPA\LEVODOPA [Suspect]
     Active Substance: CARBIDOPA\LEVODOPA
     Indication: Parkinson^s disease
     Dosage: DURATION TEXT: REMAINS AT 16 HOURS
     Route: 050
     Dates: start: 20210208
  2. CARBIDOPA\LEVODOPA [Suspect]
     Active Substance: CARBIDOPA\LEVODOPA
     Dosage: MD: 10.8ML, CD: 6.3ML/H, ED: 4.0ML, CND: 5.0ML/H, END: 2.5ML?DURATION TEXT: REMAINS AT 16 HOURS
     Route: 050
  3. CARBIDOPA\LEVODOPA [Suspect]
     Active Substance: CARBIDOPA\LEVODOPA
     Dosage: ED: 4.0ML?DURATION TEXT: REMAINS AT 16 HOURS
     Route: 050
  4. CARBIDOPA\LEVODOPA [Suspect]
     Active Substance: CARBIDOPA\LEVODOPA
     Dosage: MD: 10.8ML, CD: 6.5ML/H, ED: 4.0ML?DURATION TEXT: REMAINS AT 16 HOURS
     Route: 050
  5. CARBIDOPA\LEVODOPA [Suspect]
     Active Substance: CARBIDOPA\LEVODOPA
     Dosage: DURATION TEXT: REMAINS AT 16 HOURS
     Route: 050
  6. CARBIDOPA\LEVODOPA [Suspect]
     Active Substance: CARBIDOPA\LEVODOPA
     Route: 050
  7. POLYETHYLENE GLYCOLS [Concomitant]
     Active Substance: POLYETHYLENE GLYCOLS
     Indication: Abnormal faeces
  8. RIVOTRIL [Concomitant]
     Active Substance: CLONAZEPAM
     Indication: Sleep disorder therapy
     Dosage: FOR THE NIGHT
     Route: 048
  9. RIVOTRIL [Concomitant]
     Active Substance: CLONAZEPAM
     Indication: Sleep disorder therapy
     Dosage: FOR THE NIGHT
     Route: 048
  10. NEUPRO [Concomitant]
     Active Substance: ROTIGOTINE
     Indication: Parkinson^s disease
     Route: 062

REACTIONS (36)
  - Diarrhoea infectious [Recovered/Resolved]
  - Musculoskeletal stiffness [Unknown]
  - Stoma site discharge [Recovered/Resolved]
  - Gait disturbance [Recovered/Resolved]
  - Stoma site erythema [Not Recovered/Not Resolved]
  - Dyskinesia [Not Recovered/Not Resolved]
  - Parkinson^s disease [Recovered/Resolved]
  - Appetite disorder [Not Recovered/Not Resolved]
  - Hospitalisation [Recovered/Resolved]
  - Freezing phenomenon [Not Recovered/Not Resolved]
  - Oxygen saturation decreased [Recovered/Resolved with Sequelae]
  - Cardiac disorder [Not Recovered/Not Resolved]
  - Dyspnoea [Recovered/Resolved with Sequelae]
  - Nocturia [Not Recovered/Not Resolved]
  - On and off phenomenon [Unknown]
  - Dysstasia [Not Recovered/Not Resolved]
  - Gait disturbance [Not Recovered/Not Resolved]
  - Weight decreased [Not Recovered/Not Resolved]
  - Pericardial effusion [Unknown]
  - Malabsorption [Unknown]
  - Choking [Not Recovered/Not Resolved]
  - Frequent bowel movements [Not Recovered/Not Resolved]
  - Muscle rigidity [Not Recovered/Not Resolved]
  - Unevaluable event [Recovered/Resolved]
  - Bradykinesia [Not Recovered/Not Resolved]
  - Therapeutic product effect incomplete [Not Recovered/Not Resolved]
  - Walking aid user [Not Recovered/Not Resolved]
  - Tremor [Unknown]
  - Pleural effusion [Recovered/Resolved]
  - On and off phenomenon [Recovered/Resolved]
  - Stoma site discharge [Not Recovered/Not Resolved]
  - Grimacing [Not Recovered/Not Resolved]
  - Dry mouth [Not Recovered/Not Resolved]
  - Terminal insomnia [Not Recovered/Not Resolved]
  - Pulmonary oedema [Unknown]
  - Abnormal faeces [Not Recovered/Not Resolved]

NARRATIVE: CASE EVENT DATE: 20230101
